FAERS Safety Report 4744323-5 (Version None)
Quarter: 2005Q3

REPORT INFORMATION
  Report Type: 
  Country: None (occurrence: None)
  Receive Date: 20050812
  Receipt Date: 20050310
  Transmission Date: 20060218
  Serious: Yes (Hospitalization)
  Sender: FDA-Public Use
  Company Number: US-MERCK-0503USA02348

PATIENT
  Age: 46 Year
  Sex: Female
  Weight: 73 kg

DRUGS (2)
  1. VIOXX [Suspect]
     Indication: RHEUMATOID ARTHRITIS
     Route: 048
     Dates: start: 20000401, end: 20011109
  2. TYLENOL (CAPLET) [Concomitant]
     Route: 065

REACTIONS (2)
  - DYSPEPSIA [None]
  - MYOCARDIAL INFARCTION [None]
